FAERS Safety Report 4523255-1 (Version None)
Quarter: 2004Q4

REPORT INFORMATION
  Report Type: 
  Country: None (occurrence: None)
  Receive Date: 20041209
  Receipt Date: 20041209
  Transmission Date: 20050328
  Serious: Yes (Other)
  Sender: FDA-Public Use
  Company Number: None

PATIENT
  Sex: Female
  Weight: 86.1834 kg

DRUGS (2)
  1. LIPITOR [Suspect]
     Indication: BLOOD CHOLESTEROL
     Dosage: 10 + 20 MG 1 A DAY
     Dates: start: 19980301, end: 20001001
  2. . [Concomitant]

REACTIONS (3)
  - MUSCLE CRAMP [None]
  - NEURALGIA [None]
  - PAIN IN EXTREMITY [None]
